FAERS Safety Report 9295682 (Version 1)
Quarter: 2013Q1

REPORT INFORMATION
  Report Type: Spontaneous
  Country: US (occurrence: None)
  Receive Date: 20130107
  Receipt Date: 20130107
  Transmission Date: 20140127
  Serious: No
  Sender: FDA-Public Use
  Company Number: PHHY2012US101428

PATIENT
  Age: 38 Year
  Sex: Female
  Weight: 84.4 kg

DRUGS (6)
  1. GILENYA [Suspect]
     Indication: RELAPSING-REMITTING MULTIPLE SCLEROSIS
     Route: 048
     Dates: start: 201105
  2. KLONOPIN (CLONAZEPAM) TABLET [Concomitant]
  3. AMBIEN CR (ZOLPIDEM TARTRATE) [Concomitant]
  4. AMBIEN (ZOLPIDEM TARTRATE) [Concomitant]
  5. STEROIDS NOS (NO INGREDIENTS/SUBSTANCES) [Concomitant]
  6. WELLBUTRIN (BUPROPION HYDROCHLORIDE) [Concomitant]

REACTIONS (4)
  - Herpes zoster [None]
  - Dyspnoea [None]
  - Pain [None]
  - Rash pustular [None]
